FAERS Safety Report 13675057 (Version 7)
Quarter: 2019Q3

REPORT INFORMATION
  Report Type: Spontaneous
  Country: US (occurrence: US)
  Receive Date: 20170621
  Receipt Date: 20190927
  Transmission Date: 20191004
  Serious: Yes (Hospitalization)
  Sender: FDA-Public Use
  Company Number: US-PFIZER INC-2017269311

PATIENT
  Age: 62 Year
  Sex: Female
  Weight: 126.1 kg

DRUGS (7)
  1. ACETAMINOPHEN W/HYDROCODONE [Concomitant]
     Active Substance: ACETAMINOPHEN\HYDROCODONE
     Indication: BACK DISORDER
  2. FENTANYL. [Concomitant]
     Active Substance: FENTANYL
     Indication: BACK DISORDER
  3. REQUIP [Concomitant]
     Active Substance: ROPINIROLE HYDROCHLORIDE
     Dosage: 0.25 MG, 1X/DAY
     Route: 048
     Dates: start: 2017, end: 201804
  4. LASIX [Concomitant]
     Active Substance: FUROSEMIDE
     Dosage: 40 MG, 2X/DAY
     Route: 048
  5. ACETAMINOPHEN W/HYDROCODONE [Concomitant]
     Active Substance: ACETAMINOPHEN\HYDROCODONE
     Indication: CHRONIC INFLAMMATORY DEMYELINATING POLYRADICULONEUROPATHY
     Dosage: UNK , DAILY (4 OR 5 TABLETS)
     Route: 048
  6. LYRICA [Suspect]
     Active Substance: PREGABALIN
     Indication: CHRONIC INFLAMMATORY DEMYELINATING POLYRADICULONEUROPATHY
     Dosage: 100 MG, 4X/DAY (ONE PILL ORALLY FOUR TIMES DAILY)
     Route: 048
     Dates: start: 2012
  7. FENTANYL. [Concomitant]
     Active Substance: FENTANYL
     Indication: CHRONIC INFLAMMATORY DEMYELINATING POLYRADICULONEUROPATHY
     Dosage: UNK (50-PATCH APPLIED TO SKIN AND CHANGED EVERY 3 DAYS)
     Route: 062

REACTIONS (5)
  - Fall [Unknown]
  - Ankle fracture [Unknown]
  - Nerve injury [Unknown]
  - Off label use [Unknown]
  - Product use in unapproved indication [Unknown]

NARRATIVE: CASE EVENT DATE: 2012
